FAERS Safety Report 6519630-6 (Version None)
Quarter: 2009Q4

REPORT INFORMATION
  Report Type: 
  Country: None (occurrence: None)
  Receive Date: 20091228
  Receipt Date: 20091215
  Transmission Date: 20100525
  Serious: Yes (Hospitalization)
  Sender: FDA-Public Use
  Company Number: FR-MEDIMMUNE-MEDI-0004282

PATIENT
  Weight: 7.3 kg

DRUGS (2)
  1. SYNAGIS [Suspect]
     Route: 030
     Dates: start: 20050610, end: 20051110
  2. SYNAGIS [Suspect]
     Route: 030
     Dates: start: 20051212, end: 20060313

REACTIONS (1)
  - BRONCHIAL OBSTRUCTION [None]
